FAERS Safety Report 15774278 (Version 1)
Quarter: 2018Q4

REPORT INFORMATION
  Report Type: Spontaneous
  Country: US (occurrence: US)
  Receive Date: 20181229
  Receipt Date: 20181229
  Transmission Date: 20190205
  Serious: Yes (Death, Hospitalization, Other)
  Sender: FDA-Public Use
  Company Number: US-AUROBINDO-AUR-APL-2018-063728

PATIENT
  Age: 60 Year
  Sex: Male

DRUGS (1)
  1. METOPROLOL TARTRATE FILM COATED TABLETS USP 100 MG [Suspect]
     Active Substance: METOPROLOL TARTRATE
     Indication: PRODUCT USED FOR UNKNOWN INDICATION
     Route: 048

REACTIONS (4)
  - Completed suicide [Fatal]
  - Overdose [Fatal]
  - Haemodynamic instability [Fatal]
  - Toxicity to various agents [Fatal]
